FAERS Safety Report 9762845 (Version 1)
Quarter: 2013Q4

REPORT INFORMATION
  Report Type: Spontaneous
  Country: US (occurrence: US)
  Receive Date: 20131216
  Receipt Date: 20131216
  Transmission Date: 20140711
  Serious: No
  Sender: FDA-Public Use
  Company Number: US-FOUGERA-2012FO001404

PATIENT
  Age: 79 Year
  Sex: Female
  Weight: 56.75 kg

DRUGS (1)
  1. SOLARAZE [Suspect]
     Indication: ACTINIC KERATOSIS
     Route: 061
     Dates: start: 20121101, end: 201211

REACTIONS (8)
  - Application site discharge [Recovering/Resolving]
  - Application site erythema [Recovering/Resolving]
  - Application site inflammation [Recovering/Resolving]
  - Eyelid oedema [Recovering/Resolving]
  - Sleep disorder [Recovering/Resolving]
  - Malaise [Recovering/Resolving]
  - Pruritus [Recovering/Resolving]
  - Vision blurred [Recovering/Resolving]
